FAERS Safety Report 21491370 (Version 4)
Quarter: 2022Q4

REPORT INFORMATION
  Report Type: Spontaneous
  Country: US (occurrence: US)
  Receive Date: 20221021
  Receipt Date: 20221222
  Transmission Date: 20230113
  Serious: No
  Sender: FDA-Public Use
  Company Number: US-PFIZER INC-2019260575

PATIENT
  Age: 66 Year
  Sex: Female

DRUGS (1)
  1. XELJANZ XR [Suspect]
     Active Substance: TOFACITINIB CITRATE
     Dosage: 11 MG

REACTIONS (6)
  - Therapy interrupted [Unknown]
  - Headache [Unknown]
  - Neck injury [Unknown]
  - Respiratory syncytial virus test [Unknown]
  - Illness [Unknown]
  - Hypoaesthesia [Unknown]
